FAERS Safety Report 4270813-8 (Version None)
Quarter: 2004Q1

REPORT INFORMATION
  Report Type: 
  Country: None (occurrence: None)
  Receive Date: 20040114
  Receipt Date: 20020520
  Transmission Date: 20041129
  Serious: Yes (Hospitalization, Other)
  Sender: FDA-Public Use
  Company Number: US-BRISTOL-MYERS SQUIBB COMPANY-11866738

PATIENT
  Age: 73 Year
  Sex: Male

DRUGS (14)
  1. METFORMIN HCL [Suspect]
     Route: 048
     Dates: start: 19981006, end: 20020501
  2. PLACEBO [Suspect]
     Dosage: MOST RECENT DOSE PRIOR TO THE EVENT WAS ON 11-MAY-2002.
     Route: 048
     Dates: start: 20010515, end: 20020511
  3. PRAVASTATIN SODIUM [Suspect]
     Dosage: MOST RECENT DOSE PRIOR TO THE EVENT WAS ON 11-MAY-2002.
     Route: 048
     Dates: start: 20010501
  4. GLYBURIDE [Concomitant]
     Route: 048
     Dates: start: 19880101
  5. AMLODIPINE BESYLATE [Concomitant]
     Route: 048
     Dates: start: 20010422
  6. ASPIRIN TAB [Concomitant]
     Route: 048
     Dates: start: 19870501
  7. LISINOPRIL [Concomitant]
     Route: 048
     Dates: start: 20010320
  8. NITRO PATCH [Concomitant]
     Route: 050
     Dates: start: 20011217
  9. METOPROLOL [Concomitant]
     Route: 048
     Dates: start: 20010320
  10. DIGOXIN [Concomitant]
     Route: 048
     Dates: start: 20020510
  11. FUROSEMIDE [Concomitant]
     Route: 048
     Dates: start: 20010320
  12. SPIRONOLACTONE [Concomitant]
     Route: 048
     Dates: start: 20010320
  13. COUMADIN [Concomitant]
     Dates: start: 20000619
  14. LOSARTAN [Concomitant]
     Route: 048
     Dates: start: 20010626, end: 20020418

REACTIONS (11)
  - ACUTE CORONARY SYNDROME [None]
  - ATRIAL FIBRILLATION [None]
  - CARDIAC FAILURE CONGESTIVE [None]
  - DIALYSIS [None]
  - HYPOTENSION [None]
  - ISCHAEMIC HEPATITIS [None]
  - LACTIC ACIDOSIS [None]
  - LIVER FUNCTION TEST ABNORMAL [None]
  - MYOCARDIAL INFARCTION [None]
  - RENAL FAILURE ACUTE [None]
  - UPPER RESPIRATORY TRACT INFECTION [None]
